FAERS Safety Report 5063066-4 (Version None)
Quarter: 2006Q3

REPORT INFORMATION
  Report Type: 
  Country: None (occurrence: None)
  Receive Date: 20060724
  Receipt Date: 20060707
  Transmission Date: 20061208
  Serious: Yes (Other)
  Sender: FDA-Public Use
  Company Number: DSA_28331_2006

PATIENT
  Sex: Female

DRUGS (13)
  1. ATIVAN [Suspect]
     Indication: INSOMNIA
     Dosage: 1 MG BID PO
     Route: 048
     Dates: start: 19960101
  2. INDERAL LA [Suspect]
     Indication: ANXIETY
     Dosage: 1 MG BID PO
     Route: 048
     Dates: start: 20051212, end: 20051201
  3. INDERAL LA [Suspect]
     Indication: PALPITATIONS
     Dosage: 1 MG BID PO
     Route: 048
     Dates: start: 20051212, end: 20051201
  4. INDERAL LA [Suspect]
     Indication: TREMOR
     Dosage: 1 MG BID PO
     Route: 048
     Dates: start: 20051212, end: 20051201
  5. INDERAL [Suspect]
     Indication: ANXIETY
     Dosage: 10 MG QID PO
     Route: 048
     Dates: start: 20051201, end: 20051201
  6. INDERAL [Suspect]
     Indication: PALPITATIONS
     Dosage: 10 MG QID PO
     Route: 048
     Dates: start: 20051201, end: 20051201
  7. INDERAL [Suspect]
     Indication: TREMOR
     Dosage: 10 MG QID PO
     Route: 048
     Dates: start: 20051201, end: 20051201
  8. INDERAL [Suspect]
     Indication: ANXIETY
     Dosage: 10 MG TID PO
     Route: 048
     Dates: start: 20051201
  9. INDERAL [Suspect]
     Indication: PALPITATIONS
     Dosage: 10 MG TID PO
     Route: 048
     Dates: start: 20051201
  10. INDERAL [Suspect]
     Indication: TREMOR
     Dosage: 10 MG TID PO
     Route: 048
     Dates: start: 20051201
  11. PROPRANOLOL HYDROCHLORIDE [Suspect]
     Indication: ANXIETY
     Dosage: D 1 DAY PO
     Route: 048
     Dates: start: 20051201
  12. PROPRANOLOL HYDROCHLORIDE [Suspect]
     Indication: PALPITATIONS
     Dosage: D 1 DAY PO
     Route: 048
     Dates: start: 20051201
  13. PROPRANOLOL HYDROCHLORIDE [Suspect]
     Indication: TREMOR
     Dosage: D 1 DAY PO
     Route: 048
     Dates: start: 20051201

REACTIONS (14)
  - ABNORMAL DREAMS [None]
  - CONDITION AGGRAVATED [None]
  - DEPRESSION [None]
  - DIZZINESS [None]
  - DRUG INTERACTION [None]
  - DYSPNOEA [None]
  - INSOMNIA [None]
  - LETHARGY [None]
  - NAUSEA [None]
  - PAIN IN EXTREMITY [None]
  - PALPITATIONS [None]
  - TREMOR [None]
  - VERTIGO [None]
  - VOMITING [None]
